FAERS Safety Report 7478119-0 (Version None)
Quarter: 2011Q2

REPORT INFORMATION
  Report Type: 
  Country: None (occurrence: None)
  Receive Date: 20110513
  Receipt Date: 20110303
  Transmission Date: 20111010
  Serious: Yes (Life-Threatening, Hospitalization)
  Sender: FDA-Public Use
  Company Number: KR-BAYER-2011-016186

PATIENT
  Age: 59 Year
  Sex: Male
  Weight: 58 kg

DRUGS (11)
  1. CALCIUM CHANNEL BLOCKERS [Concomitant]
     Indication: HYPERTENSION
     Dosage: 5 MG, QD
     Dates: start: 20101222, end: 20101227
  2. OLMESARTAN MEDOXOMIL [Concomitant]
     Dosage: 40 MG, QD
     Dates: start: 20110104
  3. TRIMEBUTINE [Concomitant]
     Dosage: 300 MG, TID
     Dates: start: 20101222, end: 20110123
  4. ATENOLOL [Concomitant]
     Indication: HYPERTENSION
     Dosage: 25 MG, QD
     Dates: start: 20110104
  5. NORVASC [Concomitant]
     Indication: HYPERTENSION
     Dosage: 1 DF, QD
     Dates: start: 20050101, end: 20101221
  6. NEXAVAR [Suspect]
     Indication: HEPATIC NEOPLASM MALIGNANT
     Dosage: 400 MG, BID
     Route: 048
     Dates: start: 20101215, end: 20101221
  7. OLMESARTAN MEDOXOMIL [Concomitant]
     Indication: HYPERTENSION
     Dosage: 20 MG, QD
     Dates: start: 20101228, end: 20110103
  8. NEXAVAR [Suspect]
     Dosage: 400 MG, QD
     Dates: start: 20101222
  9. TRIMEBUTINE [Concomitant]
     Indication: DIARRHOEA
     Dosage: UNK
  10. SMECTA [SMECTITE] [Concomitant]
     Indication: DIARRHOEA
     Dosage: 60 ML, TID
     Dates: start: 20101222
  11. ATENOLOL [Concomitant]
     Dosage: 1 DF, QD
     Dates: start: 20050101, end: 20101221

REACTIONS (2)
  - HYPOPHAGIA [None]
  - DIARRHOEA [None]
